FAERS Safety Report 12419207 (Version 5)
Quarter: 2016Q4

REPORT INFORMATION
  Report Type: Report from Study
  Country: US (occurrence: US)
  Receive Date: 20160531
  Receipt Date: 20161121
  Transmission Date: 20170207
  Serious: Yes (Other)
  Sender: FDA-Public Use
  Company Number: US-BAYER-2015-465344

PATIENT
  Age: 73 Year
  Sex: Male
  Weight: 132.43 kg

DRUGS (7)
  1. ADEMPAS [Suspect]
     Active Substance: RIOCIGUAT
     Indication: PULMONARY ARTERIAL HYPERTENSION
     Dosage: 0.5 MG, TID
     Route: 048
  2. ADEMPAS [Suspect]
     Active Substance: RIOCIGUAT
     Indication: PULMONARY ARTERIAL HYPERTENSION
     Dosage: UNK
     Dates: start: 20151026
  3. ADEMPAS [Suspect]
     Active Substance: RIOCIGUAT
     Indication: PULMONARY ARTERIAL HYPERTENSION
     Dosage: 0.5 MG, TID
     Route: 048
  4. ADEMPAS [Suspect]
     Active Substance: RIOCIGUAT
     Indication: PULMONARY ARTERIAL HYPERTENSION
     Dosage: 0.5 MG, TID
     Route: 048
  5. COUMADIN [Concomitant]
     Active Substance: WARFARIN SODIUM
     Dosage: UNK
  6. ADEMPAS [Suspect]
     Active Substance: RIOCIGUAT
     Indication: PULMONARY ARTERIAL HYPERTENSION
     Dosage: 0.5 MG, TID
     Route: 048
  7. XARELTO [Suspect]
     Active Substance: RIVAROXABAN
     Dosage: UNK

REACTIONS (18)
  - Blood pressure decreased [None]
  - Abnormal loss of weight [Unknown]
  - Peripheral swelling [Unknown]
  - Productive cough [None]
  - Cough [None]
  - Dyspnoea exertional [Unknown]
  - Multiple allergies [None]
  - Low density lipoprotein increased [Unknown]
  - Flushing [None]
  - Contusion [None]
  - Hyperphagia [None]
  - Productive cough [Unknown]
  - Throat irritation [Unknown]
  - Hypertension [Unknown]
  - Feeling abnormal [None]
  - Sinusitis [None]
  - Weight increased [None]
  - Unevaluable event [Unknown]

NARRATIVE: CASE EVENT DATE: 201604
